FAERS Safety Report 8588747-7 (Version None)
Quarter: 2012Q3

REPORT INFORMATION
  Report Type: 
  Country: None (occurrence: None)
  Receive Date: 20120813
  Receipt Date: 20120803
  Transmission Date: 20120928
  Serious: Yes (Hospitalization, Other)
  Sender: FDA-Public Use
  Company Number: PHHO2012CA004281

PATIENT
  Sex: Female
  Weight: 27.2 kg

DRUGS (14)
  1. NAPROXEN [Concomitant]
     Indication: ANTIINFLAMMATORY THERAPY
     Dosage: 200 MG, BID
     Route: 048
     Dates: start: 20120103, end: 20120308
  2. CALCIA [Concomitant]
     Indication: SUPPLEMENTATION THERAPY
     Dosage: LEPLJ/2
     Dates: start: 20070718, end: 20120308
  3. ILARIS [Suspect]
     Indication: JUVENILE ARTHRITIS
     Dosage: 4 MG/KG, UNK
     Route: 058
     Dates: start: 20100112
  4. D-VI-SOL [Concomitant]
     Indication: VITAMIN SUPPLEMENTATION
     Dosage: 1 COMPTE GOUTTE/DAY
     Dates: start: 20070715
  5. PREVACID [Concomitant]
     Indication: PROPHYLAXIS
     Dosage: 15 MG, DIE
     Dates: start: 20100915, end: 20120308
  6. AMOXICILLIN AND CLAVULANATE POTASSIUM [Suspect]
     Indication: SINUSITIS
     Dosage: 200 / 500 MG Q8H
     Route: 042
     Dates: start: 20120308, end: 20120308
  7. TYLENOL-ACETAMINOPHENE [Concomitant]
     Indication: PYREXIA
     Dosage: 324 MG, Q4H
     Dates: start: 20120302
  8. MORPHINE [Concomitant]
     Indication: PAIN
     Dosage: 6 MG, Q4H,PRN
     Dates: start: 20090115
  9. MORPHINE SULFATE [Concomitant]
     Indication: JUVENILE ARTHRITIS
     Dosage: 50 MG, QD
     Dates: start: 20090115
  10. TYLENOL-ACETAMINOPHENE [Concomitant]
     Dosage: UNK
     Dates: start: 20120309
  11. PEDIAPRED [Concomitant]
     Dosage: 9 MG, QD
     Dates: start: 20070623
  12. FOLIC ACID [Concomitant]
     Indication: VITAMIN SUPPLEMENTATION
     Dosage: 2.5 MG, QW
     Dates: start: 20071115
  13. VITAMIN D [Concomitant]
     Indication: SUPPLEMENTATION THERAPY
     Dosage: LEPLJ/2
     Dates: start: 20070718, end: 20120308
  14. METHOTREXATE [Concomitant]
     Indication: JUVENILE ARTHRITIS
     Dosage: 10 MG, QW
     Dates: start: 20101130, end: 20120302

REACTIONS (3)
  - SINUSITIS [None]
  - IMPETIGO [None]
  - GASTROENTERITIS [None]
